FAERS Safety Report 7488062-9 (Version None)
Quarter: 2011Q2

REPORT INFORMATION
  Report Type: 
  Country: None (occurrence: None)
  Receive Date: 20110518
  Receipt Date: 20110511
  Transmission Date: 20111010
  Serious: Yes (Life-Threatening)
  Sender: FDA-Public Use
  Company Number: JP-ROCHE-672587

PATIENT
  Sex: Female
  Weight: 48 kg

DRUGS (9)
  1. PREDNISOLONE [Suspect]
     Route: 048
     Dates: start: 20090113, end: 20090607
  2. FAMOTIDINE [Suspect]
     Indication: PROPHYLAXIS
     Route: 048
  3. ALFAROL [Suspect]
     Indication: PROPHYLAXIS
     Route: 048
  4. PREDNISOLONE [Suspect]
     Route: 048
     Dates: start: 20090608
  5. ACTEMRA [Suspect]
     Indication: JUVENILE ARTHRITIS
     Route: 041
     Dates: start: 20080826, end: 20081118
  6. ACTEMRA [Suspect]
     Route: 041
     Dates: start: 20090113
  7. ACTEMRA [Suspect]
     Route: 041
     Dates: start: 20081208, end: 20081222
  8. SELBEX [Suspect]
     Indication: PROPHYLAXIS
     Dosage: DOSE FORM: MINUTE GRAIN
     Route: 048
  9. PREDNISOLONE [Suspect]
     Indication: JUVENILE ARTHRITIS
     Route: 048
     Dates: end: 20090112

REACTIONS (2)
  - SHOCK HAEMORRHAGIC [None]
  - SMALL INTESTINAL HAEMORRHAGE [None]
